FAERS Safety Report 19520004 (Version 1)
Quarter: 2021Q3

REPORT INFORMATION
  Report Type: Spontaneous
  Country: US (occurrence: US)
  Receive Date: 20210712
  Receipt Date: 20210712
  Transmission Date: 20211014
  Serious: Yes (Other)
  Sender: FDA-Public Use
  Company Number: US-LUPIN PHARMACEUTICALS INC.-2021-11462

PATIENT
  Age: 51 Year
  Sex: Male

DRUGS (13)
  1. CETIRIZINE [Suspect]
     Active Substance: CETIRIZINE HYDROCHLORIDE
     Dosage: 40 MILLIGRAM, QD
     Route: 065
  2. TRIAMCINOLONE [Concomitant]
     Active Substance: TRIAMCINOLONE
     Indication: ASPIRIN-EXACERBATED RESPIRATORY DISEASE
     Dosage: 55 MICROGRAM, BID
     Route: 045
  3. OMALIZUMAB. [Concomitant]
     Active Substance: OMALIZUMAB
     Indication: CHRONIC SPONTANEOUS URTICARIA
     Dosage: 300 MILLIGRAM, EVERY 4 WEEKS
     Route: 058
  4. MEPOLIZUMAB [Concomitant]
     Active Substance: MEPOLIZUMAB
     Indication: ASPIRIN-EXACERBATED RESPIRATORY DISEASE
     Dosage: 100 MILLIGRAM, EVERY 4 WEEKS
     Route: 058
  5. HYDROXYZINE [Suspect]
     Active Substance: HYDROXYZINE HYDROCHLORIDE
     Indication: URTICARIA
     Dosage: UNK UNK, QD, 25?50 MG
     Route: 065
  6. IBUPROFEN. [Concomitant]
     Active Substance: IBUPROFEN
     Indication: PRODUCT USED FOR UNKNOWN INDICATION
     Dosage: UNK
     Route: 065
  7. ALBUTEROL. [Concomitant]
     Active Substance: ALBUTEROL
     Indication: ASPIRIN-EXACERBATED RESPIRATORY DISEASE
     Dosage: 90 MICROGRAM, PRN, RESCUE INHALER
     Route: 065
  8. ALBUTEROL. [Concomitant]
     Active Substance: ALBUTEROL
     Dosage: 2.5 MILLIGRAM, NEBULIZED UP TO EVERY 4 HOURS
     Route: 065
  9. CETIRIZINE [Suspect]
     Active Substance: CETIRIZINE HYDROCHLORIDE
     Indication: URTICARIA
     Dosage: 10 MILLIGRAM, QD
     Route: 065
  10. HYDROXYZINE [Suspect]
     Active Substance: HYDROXYZINE HYDROCHLORIDE
     Dosage: 25 MG, QID
     Route: 065
  11. MONTELUKAST [Concomitant]
     Active Substance: MONTELUKAST SODIUM
     Indication: ASPIRIN-EXACERBATED RESPIRATORY DISEASE
     Dosage: 10 MILLIGRAM, QD
     Route: 065
  12. FORMOTEROL;MOMETASONE [Concomitant]
     Active Substance: FORMOTEROL\MOMETASONE
     Indication: ASPIRIN-EXACERBATED RESPIRATORY DISEASE
     Dosage: 100 MILLIGRAM, BID; INHALER TWO PUFFS
  13. PREDNISONE. [Concomitant]
     Active Substance: PREDNISONE
     Indication: ASPIRIN-EXACERBATED RESPIRATORY DISEASE
     Dosage: 30 MILLIGRAM, 3?WEEK TAPERED?DOSE SCHEDULE APPROXIMATELY 12 TIMES PER YEAR
     Route: 048

REACTIONS (1)
  - Drug ineffective [Unknown]
